FAERS Safety Report 9307045 (Version 2)
Quarter: 2014Q1

REPORT INFORMATION
  Report Type: Spontaneous
  Country: US (occurrence: US)
  Receive Date: 20130523
  Receipt Date: 20140218
  Transmission Date: 20141002
  Serious: Yes (Hospitalization)
  Sender: FDA-Public Use
  Company Number: US-B.I. PHARMACEUTICALS,INC./RIDGEFIELD-2013-BI-14270BP

PATIENT
  Age: 61 Year
  Sex: Male
  Weight: 127.01 kg

DRUGS (10)
  1. PRADAXA [Suspect]
     Indication: ANTICOAGULANT THERAPY
     Dates: start: 201104, end: 201106
  2. LANTUS [Concomitant]
     Dates: start: 2008
  3. APIDRA [Concomitant]
     Dates: start: 2008
  4. VENTOLIN [Concomitant]
  5. PULMICORT [Concomitant]
  6. VITAMIN C [Concomitant]
  7. VITAMIN E [Concomitant]
  8. MUCINEX [Concomitant]
  9. ASPIRIN [Concomitant]
     Dates: start: 1980
  10. ANTARA [Concomitant]
     Dates: start: 2009

REACTIONS (2)
  - Gastrointestinal haemorrhage [Unknown]
  - Pulmonary haemorrhage [Unknown]
